FAERS Safety Report 8702216 (Version 2)
Quarter: 2012Q4

REPORT INFORMATION
  Report Type: 
  Country: FR (occurrence: FR)
  Receive Date: 20120803
  Receipt Date: 20120907
  Transmission Date: 20130627
  Serious: Yes (Other)
  Sender: FDA-Public Use
  Company Number: FR-PFIZER INC-2012183552

PATIENT
  Age: 78 Year
  Sex: Male

DRUGS (17)
  1. CAMPTO [Suspect]
     Indication: COLON CANCER METASTATIC
     Dosage: 360 mg, 1x/day
     Route: 042
     Dates: start: 20120402
  2. CAMPTO [Suspect]
     Dosage: 360 mg, 1x/day
     Dates: start: 20120416
  3. CAMPTO [Suspect]
     Dosage: 360 mg, 1x/day
     Dates: start: 20120430
  4. FLUOROURACIL [Suspect]
     Indication: COLON CANCER METASTATIC
     Dosage: 650 mg, 1x/day
     Route: 042
     Dates: start: 20120402
  5. FLUOROURACIL [Suspect]
     Dosage: 650 mg, 1x/day
     Route: 042
     Dates: start: 20120416
  6. FLUOROURACIL [Suspect]
     Dosage: 650 mg, 1x/day
     Route: 042
     Dates: start: 20120430
  7. SPECIAFOLDINE [Suspect]
     Indication: COLON CANCER METASTATIC
     Dosage: 1st course
     Route: 042
     Dates: start: 20120402
  8. SPECIAFOLDINE [Suspect]
     Dosage: 2nd course
     Route: 042
     Dates: start: 20120416
  9. SPECIAFOLDINE [Suspect]
     Dosage: 3rd course
     Route: 042
     Dates: start: 20120430
  10. ERBITUX [Suspect]
     Indication: COLON CANCER METASTATIC
     Dosage: 500 mg, 1x/day
     Route: 042
     Dates: start: 20120402
  11. ERBITUX [Suspect]
     Dosage: 500 mg, 1x/day
     Route: 042
     Dates: start: 20120416
  12. ERBITUX [Suspect]
     Dosage: 500 mg, 1x/day
     Route: 042
     Dates: start: 20120430
  13. IPERTEN [Concomitant]
  14. FLIMACH [Concomitant]
  15. PRAVASTATIN [Concomitant]
  16. METFORMIN [Concomitant]
  17. ALLOPURINOL [Concomitant]

REACTIONS (1)
  - Hepatitis cholestatic [Recovering/Resolving]
